FAERS Safety Report 10911335 (Version 1)
Quarter: 2015Q1

REPORT INFORMATION
  Report Type: Report from Study
  Country: NL (occurrence: NL)
  Receive Date: 20150313
  Receipt Date: 20150313
  Transmission Date: 20150721
  Serious: Yes (Other)
  Sender: FDA-Public Use
  Company Number: NL-AMGEN-NLDSL2015022701

PATIENT
  Age: 39 Year
  Sex: Male

DRUGS (1)
  1. NEULASTA [Suspect]
     Active Substance: PEGFILGRASTIM
     Indication: PROPHYLAXIS
     Dosage: 10 MG/ML, INJVLST, WWSP 0.6 ML, EVERY WEEK
     Route: 058
     Dates: start: 20150223

REACTIONS (2)
  - No therapeutic response [Unknown]
  - Surgery [Unknown]

NARRATIVE: CASE EVENT DATE: 20150309
